FAERS Safety Report 14281017 (Version 7)
Quarter: 2018Q1

REPORT INFORMATION
  Report Type: Spontaneous
  Country: GB (occurrence: GB)
  Receive Date: 20171213
  Receipt Date: 20180327
  Transmission Date: 20180508
  Serious: Yes (Hospitalization, Other)
  Sender: FDA-Public Use
  Company Number: GB-AUROBINDO-AUR-APL-2017-44268

PATIENT
  Age: 50 Year
  Sex: Female

DRUGS (4)
  1. TENOFOVIR DISOPROXIL [Suspect]
     Active Substance: TENOFOVIR DISOPROXIL
     Indication: HIV INFECTION
     Dosage: UNK ()
     Route: 065
  2. VIREAD [Suspect]
     Active Substance: TENOFOVIR DISOPROXIL FUMARATE
     Indication: HIV INFECTION
     Dosage: UNK ()
     Route: 065
  3. ZIDOVUDINE. [Concomitant]
     Active Substance: ZIDOVUDINE
     Indication: HIV INFECTION
     Dosage: UNK ()
     Route: 065
  4. LAMIVUDINE. [Suspect]
     Active Substance: LAMIVUDINE
     Indication: HIV INFECTION
     Dosage: UNK
     Route: 065

REACTIONS (13)
  - Metabolic acidosis [Unknown]
  - Hepatic function abnormal [Unknown]
  - Hepatitis A [Unknown]
  - Chronic kidney disease [Recovering/Resolving]
  - Fanconi syndrome acquired [Unknown]
  - Glycosuria [Unknown]
  - Arthralgia [Unknown]
  - Proteinuria [Unknown]
  - Pain [Unknown]
  - AIDS cholangiopathy [Unknown]
  - Mobility decreased [Recovered/Resolved]
  - Abnormal loss of weight [Unknown]
  - Hypophosphataemia [Unknown]
